FAERS Safety Report 20577230 (Version 1)
Quarter: 2022Q1

REPORT INFORMATION
  Report Type: Spontaneous
  Country: US (occurrence: US)
  Receive Date: 20220310
  Receipt Date: 20220310
  Transmission Date: 20220423
  Serious: Yes (Hospitalization)
  Sender: FDA-Public Use
  Company Number: US-MYLANLABS-2022M1017887

PATIENT
  Age: 68 Year
  Sex: Male

DRUGS (2)
  1. PHENYTOIN [Suspect]
     Active Substance: PHENYTOIN
     Indication: Seizure
     Dosage: UNK
     Route: 065
  2. LEVETIRACETAM [Concomitant]
     Active Substance: LEVETIRACETAM
     Indication: Seizure
     Dosage: UNK
     Route: 065

REACTIONS (6)
  - Drug level below therapeutic [Unknown]
  - Seizure [Unknown]
  - Anticonvulsant drug level above therapeutic [Unknown]
  - Toxicity to various agents [Unknown]
  - Balance disorder [Unknown]
  - Somnolence [Unknown]
